FAERS Safety Report 6512767-7 (Version None)
Quarter: 2009Q4

REPORT INFORMATION
  Report Type: 
  Country: None (occurrence: None)
  Receive Date: 20091217
  Receipt Date: 20091205
  Transmission Date: 20100525
  Serious: Yes (Hospitalization)
  Sender: FDA-Public Use
  Company Number: AE-2009-307

PATIENT
  Age: 48 Year
  Sex: Female

DRUGS (5)
  1. ATENOLOL [Suspect]
     Indication: PALPITATIONS
     Dosage: 50MG, QD
  2. CHLOROQUINE PHOSPHATE [Suspect]
     Indication: CUTANEOUS LUPUS ERYTHEMATOSUS
     Dosage: 300MG, DAILY
     Dates: end: 20000301
  3. CHLOROQUINE PHOSPHATE [Suspect]
     Indication: CUTANEOUS LUPUS ERYTHEMATOSUS
     Dosage: 300MG, QD
     Dates: start: 20001001
  4. CHLOROQUINE PHOSPHATE [Concomitant]
  5. THALIDOMIDE [Concomitant]

REACTIONS (13)
  - ATRIOVENTRICULAR BLOCK COMPLETE [None]
  - CARDIOMYOPATHY [None]
  - CARDIOTOXICITY [None]
  - CONVULSION [None]
  - CYTOLYTIC HEPATITIS [None]
  - DEVICE INEFFECTIVE [None]
  - DIZZINESS [None]
  - HYPOKALAEMIA [None]
  - LIVER INJURY [None]
  - LOSS OF CONSCIOUSNESS [None]
  - PALPITATIONS [None]
  - SYNCOPE [None]
  - VISUAL FIELD DEFECT [None]
